FAERS Safety Report 10748374 (Version 1)
Quarter: 2015Q1

REPORT INFORMATION
  Report Type: Spontaneous
  Country: US (occurrence: None)
  Receive Date: 20150120
  Receipt Date: 20150120
  Transmission Date: 20150721
  Serious: No
  Sender: FDA-Public Use
  Company Number: AEGR000788

PATIENT
  Age: 70 Year
  Sex: Male
  Weight: 72.6 kg

DRUGS (9)
  1. NITROGLYCERIN. [Concomitant]
     Active Substance: NITROGLYCERIN
  2. JUXTAPID [Suspect]
     Active Substance: LOMITAPIDE MESYLATE
     Indication: TYPE IIA HYPERLIPIDAEMIA
     Route: 048
     Dates: start: 20140927
  3. LOSARTAN [Concomitant]
     Active Substance: LOSARTAN
  4. DONNATAL (ATROPINE SULFATE, HYOSCINE HYDROBROMIDE, HYOSCYAMINE SULFATE, PHENOBARBITAL) [Concomitant]
  5. ASPIRIN (ACETYLSALICYLIC ACID) [Concomitant]
     Active Substance: ASPIRIN
  6. FUROSEMIDE. [Concomitant]
     Active Substance: FUROSEMIDE
  7. FOLIC ACID (FOLIC ACID) [Concomitant]
     Active Substance: FOLIC ACID
  8. FLOMAX [Suspect]
     Active Substance: TAMSULOSIN HYDROCHLORIDE
     Indication: PRODUCT USED FOR UNKNOWN INDICATION
     Route: 048
  9. VICODIN ES (HYDROCODONE BITARTRATE, PARACETAMOL) [Concomitant]

REACTIONS (5)
  - Constipation [None]
  - Diarrhoea [None]
  - Gastrooesophageal reflux disease [None]
  - Abdominal distension [None]
  - Nausea [None]

NARRATIVE: CASE EVENT DATE: 2014
